FAERS Safety Report 6015874-0 (Version None)
Quarter: 2008Q4

REPORT INFORMATION
  Report Type: 
  Country: None (occurrence: None)
  Receive Date: 20081222
  Receipt Date: 20081219
  Transmission Date: 20090506
  Serious: Yes (Hospitalization)
  Sender: FDA-Public Use
  Company Number: A0761188A

PATIENT
  Age: 63 Year
  Sex: Male
  Weight: 81.8 kg

DRUGS (7)
  1. AVANDIA [Suspect]
     Dosage: 4MG PER DAY
     Route: 048
     Dates: start: 20040101, end: 20061201
  2. AVANDAMET [Suspect]
     Route: 048
     Dates: start: 20040101, end: 20061201
  3. GLUCOTROL [Concomitant]
  4. IMIPRAMINE [Concomitant]
  5. FUROSEMIDE [Concomitant]
  6. VITAMIN [Concomitant]
  7. ASPIRIN [Concomitant]

REACTIONS (2)
  - HEART RATE INCREASED [None]
  - MONOPLEGIA [None]
